FAERS Safety Report 17990539 (Version 1)
Quarter: 2020Q3

REPORT INFORMATION
  Report Type: Spontaneous
  Country: IN (occurrence: IN)
  Receive Date: 20200707
  Receipt Date: 20200707
  Transmission Date: 20201103
  Serious: Yes (Other)
  Sender: FDA-Public Use
  Company Number: IN-PFIZER INC-2019544505

PATIENT
  Age: 58 Year
  Sex: Female

DRUGS (7)
  1. GRILINCTUS BM [Concomitant]
     Dosage: UNK (THRICE A DAY? 8:00AM, 2:00PM AND 8:00PM)
     Dates: start: 20200127
  2. REGLAN [Concomitant]
     Active Substance: METOCLOPRAMIDE HYDROCHLORIDE
     Indication: VOMITING
  3. ATIVAN [Concomitant]
     Active Substance: LORAZEPAM
     Dosage: 1 DF, 1X/DAY (ONCE BEFORE BED)
     Dates: start: 20200127
  4. CRIZALK [Suspect]
     Active Substance: CRIZOTINIB
     Indication: NON-SMALL CELL LUNG CANCER
     Dosage: 250 MG, 2X/DAY
     Route: 048
     Dates: start: 20190429
  5. CRIZALK [Suspect]
     Active Substance: CRIZOTINIB
     Dosage: 250 MG
     Dates: start: 20200127
  6. REGLAN [Concomitant]
     Active Substance: METOCLOPRAMIDE HYDROCHLORIDE
     Indication: NAUSEA
     Dosage: 3 DF, 1X/DAY
     Dates: start: 20200127
  7. CREMAFFIN PINK [Concomitant]
     Dosage: UNK UNK, 2X/DAY (TWICE A DAY? 8:00AM AND 8:00PM)
     Dates: start: 20200127

REACTIONS (6)
  - Blood pressure increased [Unknown]
  - Oedema peripheral [Unknown]
  - Tension [Unknown]
  - Blood creatinine increased [Unknown]
  - Heart rate decreased [Unknown]
  - Creatinine renal clearance decreased [Unknown]

NARRATIVE: CASE EVENT DATE: 20200616
